FAERS Safety Report 16347043 (Version 1)
Quarter: 2019Q2

REPORT INFORMATION
  Report Type: Spontaneous
  Country: US (occurrence: US)
  Receive Date: 20190417
  Receipt Date: 20190417
  Transmission Date: 20190711
  Serious: No
  Sender: FDA-Public Use
  Company Number: None

PATIENT

DRUGS (1)
  1. REPATHA [Suspect]
     Active Substance: EVOLOCUMAB
     Dates: start: 201812

REACTIONS (2)
  - Arthralgia [None]
  - Diarrhoea [None]

NARRATIVE: CASE EVENT DATE: 20190417
